FAERS Safety Report 17686146 (Version 5)
Quarter: 2020Q2

REPORT INFORMATION
  Report Type: Report from Study
  Country: US (occurrence: US)
  Receive Date: 20200420
  Receipt Date: 20200611
  Transmission Date: 20200714
  Serious: Yes (Death, Hospitalization)
  Sender: FDA-Public Use
  Company Number: US-ACTELION-A-NJ2018-167575

PATIENT
  Age: 68 Year
  Sex: Female
  Weight: 51.7 kg

DRUGS (7)
  1. UPTRAVI [Suspect]
     Active Substance: SELEXIPAG
     Indication: PULMONARY HYPERTENSION
     Dosage: 600 MCG, BID
     Route: 048
  2. ADCIRCA [Concomitant]
     Active Substance: TADALAFIL
  3. LETAIRIS [Concomitant]
     Active Substance: AMBRISENTAN
  4. UPTRAVI [Suspect]
     Active Substance: SELEXIPAG
     Dosage: 800 MCG, BID
     Route: 048
  5. UPTRAVI [Suspect]
     Active Substance: SELEXIPAG
     Dosage: 1200 MCG, BID
     Route: 048
  6. UPTRAVI [Suspect]
     Active Substance: SELEXIPAG
     Dosage: 1000 MCG, BID
     Route: 048
  7. UPTRAVI [Suspect]
     Active Substance: SELEXIPAG
     Dosage: 1200 MCG IN AM 1400 MCG IN PM
     Route: 048

REACTIONS (14)
  - Sinus disorder [Unknown]
  - Product dose omission [Unknown]
  - Blood potassium decreased [Unknown]
  - Carbon dioxide increased [Recovering/Resolving]
  - Death [Fatal]
  - Headache [Unknown]
  - Flank pain [Unknown]
  - Intestinal obstruction [Unknown]
  - Syncope [Unknown]
  - Dysphagia [Unknown]
  - Asthenia [Not Recovered/Not Resolved]
  - Accidental overdose [Unknown]
  - Abdominal pain upper [Unknown]
  - Dyspnoea [Unknown]

NARRATIVE: CASE EVENT DATE: 20180710
